FAERS Safety Report 5369916-6 (Version None)
Quarter: 2007Q2

REPORT INFORMATION
  Report Type: 
  Country: None (occurrence: None)
  Receive Date: 20070621
  Receipt Date: 20070614
  Transmission Date: 20071010
  Serious: Yes (Other)
  Sender: FDA-Public Use
  Company Number: 2007-02853

PATIENT
  Age: 38 Year
  Sex: Male

DRUGS (5)
  1. ANAGRELIDE HYDROCHLORIDE [Suspect]
     Indication: THROMBOCYTHAEMIA
     Dosage: 500 MG, BID, ORAL
     Route: 048
  2. ASPIRIN [Concomitant]
  3. ALLOPURINOL [Concomitant]
  4. LISINOPRIL [Concomitant]
  5. BISOPROLOL FUMARATE [Concomitant]

REACTIONS (2)
  - SKIN NECROSIS [None]
  - SKIN ULCER [None]
